FAERS Safety Report 4778144-4 (Version None)
Quarter: 2005Q3

REPORT INFORMATION
  Report Type: 
  Country: None (occurrence: None)
  Receive Date: 20050922
  Receipt Date: 20050415
  Transmission Date: 20060218
  Serious: Yes (Other)
  Sender: FDA-Public Use
  Company Number: 2005061721

PATIENT
  Sex: Female

DRUGS (2)
  1. DEPO-PROVERA [Suspect]
     Indication: ILL-DEFINED DISORDER
     Dosage: SEE IMAGE
     Route: 030
     Dates: start: 20020121, end: 20020121
  2. DEPO-PROVERA [Suspect]
     Indication: ILL-DEFINED DISORDER
     Dosage: SEE IMAGE
     Route: 030
     Dates: start: 20050120, end: 20050120

REACTIONS (6)
  - AMENORRHOEA [None]
  - CONDITION AGGRAVATED [None]
  - DEPRESSION [None]
  - FOOD CRAVING [None]
  - GASTRIC BYPASS [None]
  - WEIGHT INCREASED [None]
